FAERS Safety Report 11364744 (Version 2)
Quarter: 2015Q3

REPORT INFORMATION
  Report Type: Report from Study
  Country: US (occurrence: US)
  Receive Date: 20150811
  Receipt Date: 20150907
  Transmission Date: 20151125
  Serious: No
  Sender: FDA-Public Use
  Company Number: PHEH2015US015182

PATIENT
  Age: 51 Year
  Sex: Female
  Weight: 68.48 kg

DRUGS (1)
  1. GILENYA [Suspect]
     Active Substance: FINGOLIMOD HYDROCHLORIDE
     Indication: RELAPSING-REMITTING MULTIPLE SCLEROSIS
     Dosage: 0.5 MG, QD
     Route: 048
     Dates: start: 20150722

REACTIONS (2)
  - Abdominal distension [Not Recovered/Not Resolved]
  - Feeling abnormal [Unknown]

NARRATIVE: CASE EVENT DATE: 20150802
